FAERS Safety Report 16414790 (Version 1)
Quarter: 2019Q2

REPORT INFORMATION
  Report Type: Spontaneous
  Country: US (occurrence: US)
  Receive Date: 20190611
  Receipt Date: 20190611
  Transmission Date: 20190711
  Serious: No
  Sender: FDA-Public Use
  Company Number: US-PFIZER INC-2019116741

PATIENT
  Age: 66 Year
  Sex: Male
  Weight: 80.29 kg

DRUGS (2)
  1. VIAGRA [Suspect]
     Active Substance: SILDENAFIL CITRATE
     Indication: PROSTATIC DISORDER
  2. VIAGRA [Suspect]
     Active Substance: SILDENAFIL CITRATE
     Indication: LUNG TRANSPLANT
     Dosage: 100 MG, AS NEEDED
     Route: 048

REACTIONS (4)
  - Off label use [Unknown]
  - Peripheral swelling [Unknown]
  - Malaise [Unknown]
  - Product use in unapproved indication [Unknown]
